FAERS Safety Report 15509820 (Version 1)
Quarter: 2018Q4

REPORT INFORMATION
  Report Type: Spontaneous
  Country: US (occurrence: US)
  Receive Date: 20181010
  Receipt Date: 20181010
  Transmission Date: 20190205
  Serious: Yes (Other)
  Sender: FDA-Public Use
  Company Number: None

PATIENT
  Sex: Female

DRUGS (1)
  1. HARVONI [Suspect]
     Active Substance: LEDIPASVIR\SOFOSBUVIR
     Indication: ILL-DEFINED DISORDER
     Route: 048
     Dates: start: 201807

REACTIONS (3)
  - Blood pressure increased [None]
  - Nausea [None]
  - Vomiting [None]
